FAERS Safety Report 21675693 (Version 4)
Quarter: 2023Q1

REPORT INFORMATION
  Report Type: Spontaneous
  Country: US (occurrence: US)
  Receive Date: 20221202
  Receipt Date: 20230317
  Transmission Date: 20230418
  Serious: No
  Sender: FDA-Public Use
  Company Number: US-ALLERGAN-2238823US

PATIENT

DRUGS (3)
  1. DURYSTA [Suspect]
     Active Substance: BIMATOPROST
     Indication: Product used for unknown indication
     Dosage: 0.01 MG, SINGLE
     Route: 031
  2. DURYSTA [Suspect]
     Active Substance: BIMATOPROST
     Indication: Product used for unknown indication
     Dosage: 0.01 MG, SINGLE
     Route: 031
  3. DURYSTA [Suspect]
     Active Substance: BIMATOPROST
     Indication: Product used for unknown indication
     Dosage: 0.01 MG, SINGLE
     Route: 031

REACTIONS (5)
  - Wrong technique in product usage process [Unknown]
  - Discomfort [Unknown]
  - Fear [Unknown]
  - Treatment noncompliance [Unknown]
  - Needle issue [Unknown]
